FAERS Safety Report 13333891 (Version 2)
Quarter: 2017Q2

REPORT INFORMATION
  Report Type: Spontaneous
  Country: US (occurrence: US)
  Receive Date: 20170314
  Receipt Date: 20170403
  Transmission Date: 20170830
  Serious: Yes (Other)
  Sender: FDA-Public Use
  Company Number: US-PFIZER INC-2017099844

PATIENT
  Age: 40 Year
  Sex: Male

DRUGS (5)
  1. TAMSULOSIN [Interacting]
     Active Substance: TAMSULOSIN
     Dosage: 0.4 MG, 2X/DAY
  2. VFEND [Suspect]
     Active Substance: VORICONAZOLE
     Indication: FUSARIUM INFECTION
     Dosage: 200 MG, 2X/DAY
     Dates: start: 201701
  3. FLUTICASONE. [Interacting]
     Active Substance: FLUTICASONE
     Dosage: 50 UG, 1X/DAY
  4. MORPHINE SULFATE. [Interacting]
     Active Substance: MORPHINE SULFATE
     Dosage: 30 MG, UNK
  5. OXYCODONE [Interacting]
     Active Substance: OXYCODONE
     Dosage: 15 MG, AS NEEDED (UP TO 4XDAILY)

REACTIONS (4)
  - Drug interaction [Recovered/Resolved]
  - Blood pressure decreased [Unknown]
  - Hallucination [Unknown]
  - Unresponsive to stimuli [Unknown]
